FAERS Safety Report 7618341-3 (Version None)
Quarter: 2011Q3

REPORT INFORMATION
  Report Type: 
  Country: None (occurrence: None)
  Receive Date: 20110718
  Receipt Date: 20110707
  Transmission Date: 20111222
  Serious: Yes (Hospitalization, Other)
  Sender: FDA-Public Use
  Company Number: PHHY2011US18683

PATIENT
  Sex: Male
  Weight: 20 kg

DRUGS (3)
  1. PENICILLIN [Concomitant]
     Indication: SPLENECTOMY
     Dosage: 250 MG, Q12H
     Route: 048
  2. ASPIRIN [Concomitant]
     Indication: THROMBOCYTOSIS
     Dosage: 81 MG, QD
     Dates: start: 20100901
  3. EXJADE [Suspect]
     Indication: IRON OVERLOAD
     Dosage: 500 MG, QD
     Route: 048
     Dates: start: 20100201

REACTIONS (7)
  - NASOPHARYNGITIS [None]
  - DIARRHOEA [None]
  - SICKLE CELL ANAEMIA [None]
  - PYREXIA [None]
  - ASTHENIA [None]
  - WHITE BLOOD CELL COUNT INCREASED [None]
  - HEADACHE [None]
